FAERS Safety Report 10021132 (Version 1)
Quarter: 2014Q1

REPORT INFORMATION
  Report Type: Spontaneous
  Country: US (occurrence: None)
  Receive Date: 20140318
  Receipt Date: 20140318
  Transmission Date: 20141002
  Serious: Yes (Other)
  Sender: FDA-Public Use
  Company Number: None

PATIENT
  Age: 67 Year
  Sex: Male
  Weight: 66.68 kg

DRUGS (1)
  1. ATORVASTATIN [Suspect]
     Indication: BLOOD CHOLESTEROL INCREASED
     Dates: start: 20140219, end: 20140307

REACTIONS (8)
  - Fatigue [None]
  - Vision blurred [None]
  - Confusional state [None]
  - Paranoia [None]
  - Dizziness [None]
  - Decreased appetite [None]
  - Irritability [None]
  - Heart rate decreased [None]
